FAERS Safety Report 7660119-9 (Version None)
Quarter: 2011Q3

REPORT INFORMATION
  Report Type: 
  Country: None (occurrence: None)
  Receive Date: 20110805
  Receipt Date: 20110729
  Transmission Date: 20111222
  Serious: Yes (Hospitalization, Other)
  Sender: FDA-Public Use
  Company Number: US-BAYER-2010-003958

PATIENT
  Age: 48 Year
  Sex: Female
  Weight: 84.807 kg

DRUGS (17)
  1. APREPITANT [Concomitant]
     Indication: NAUSEA
     Dosage: UNK UNK, PRN
  2. APREPITANT [Concomitant]
     Indication: VOMITING
  3. GLYCOPYRROLATE [Concomitant]
  4. DROSPIRENONE AND ETHINYL ESTRADIOL [Suspect]
     Indication: CONTRACEPTION
     Dosage: UNK
     Dates: start: 20060801, end: 20100101
  5. AMOXICILLIN [Concomitant]
  6. DROSPIRENONE AND ETHINYL ESTRADIOL [Suspect]
     Indication: HORMONE LEVEL ABNORMAL
  7. PHENERGAN HCL [Concomitant]
     Indication: NAUSEA
     Dosage: UNK UNK, PRN
  8. YASMIN [Suspect]
     Indication: CONTRACEPTION
     Dosage: UNK
     Route: 048
     Dates: start: 20060801, end: 20100101
  9. YASMIN [Suspect]
     Indication: HORMONE LEVEL ABNORMAL
  10. AZITHROMYCIN [Concomitant]
     Indication: HORMONE LEVEL ABNORMAL
  11. SINGULAIR [Concomitant]
     Indication: MULTIPLE ALLERGIES
     Dosage: 10 MG, UNK
     Route: 048
     Dates: start: 20050101
  12. AZITHROMYCIN [Concomitant]
     Indication: CONTRACEPTION
  13. NEXIUM [Concomitant]
     Indication: GASTRIC DISORDER
     Dosage: UNK UNK, QD
     Route: 048
  14. NEXIUM [Concomitant]
     Indication: GASTROOESOPHAGEAL REFLUX DISEASE
  15. EMEND [Concomitant]
  16. PROMETHAZINE HYDROXYETHYL CHLORIDE [Concomitant]
  17. THYROID TAB [Concomitant]
     Indication: HYPOTHYROIDISM
     Dosage: 90 MG, UNK
     Route: 048
     Dates: start: 20050101

REACTIONS (7)
  - BILIARY DYSKINESIA [None]
  - GALLBLADDER DISORDER [None]
  - PAIN [None]
  - DYSPEPSIA [None]
  - CHOLELITHIASIS [None]
  - ABDOMINAL PAIN UPPER [None]
  - PROCEDURAL PAIN [None]
